FAERS Safety Report 9117942 (Version 1)
Quarter: 2013Q1

REPORT INFORMATION
  Report Type: Spontaneous
  Country: US (occurrence: US)
  Receive Date: 20130225
  Receipt Date: 20130225
  Transmission Date: 20140127
  Serious: Yes (Other)
  Sender: FDA-Public Use
  Company Number: CHPA2013US003454

PATIENT
  Age: 80 Year
  Sex: Female

DRUGS (1)
  1. PREVACID 24HR 15MG [Suspect]
     Indication: DYSPEPSIA
     Dosage: 15 MG, QD
     Route: 048
     Dates: start: 2010

REACTIONS (6)
  - Ear infection [Recovered/Resolved]
  - Dizziness [Recovered/Resolved]
  - Abasia [Recovered/Resolved]
  - Vomiting [Recovered/Resolved]
  - Disease recurrence [Unknown]
  - Incorrect drug administration duration [Unknown]
